FAERS Safety Report 7982036-7 (Version None)
Quarter: 2011Q4

REPORT INFORMATION
  Report Type: 
  Country: None (occurrence: None)
  Receive Date: 20111215
  Receipt Date: 20111213
  Transmission Date: 20120403
  Serious: No
  Sender: FDA-Public Use
  Company Number: US-BAYER-2011-120181

PATIENT
  Age: 55 Year
  Sex: Male
  Weight: 115.19 kg

DRUGS (4)
  1. ULTRAVIST 150 [Suspect]
     Indication: COMPUTERISED TOMOGRAM ABDOMEN
     Dosage: 120 ML, ONCE
     Route: 042
     Dates: start: 20111213, end: 20111213
  2. LISINOPRIL [Concomitant]
  3. INSULIN [Concomitant]
  4. ULTRAVIST 150 [Suspect]
     Indication: NEUROENDOCRINE TUMOUR

REACTIONS (1)
  - URTICARIA [None]
